FAERS Safety Report 5052900-X (Version None)
Quarter: 2006Q3

REPORT INFORMATION
  Report Type: 
  Country: None (occurrence: None)
  Receive Date: 20060712
  Receipt Date: 20060712
  Transmission Date: 20061208
  Serious: No
  Sender: FDA-Public Use
  Company Number: None

PATIENT
  Sex: Female
  Weight: 45.3597 kg

DRUGS (2)
  1. CLONAZEPAM [Suspect]
     Indication: ESSENTIAL TREMOR
     Dosage: 0.5 MG, 5/DAY, ORAL
     Route: 048
  2. CLONAZEPAM [Suspect]
     Indication: TORTICOLLIS
     Dosage: 0.5 MG, 5/DAY, ORAL
     Route: 048

REACTIONS (3)
  - HEAD TITUBATION [None]
  - THERAPEUTIC RESPONSE UNEXPECTED WITH DRUG SUBSTITUTION [None]
  - TREMOR [None]
